FAERS Safety Report 9384113 (Version 2)
Quarter: 2013Q3

REPORT INFORMATION
  Report Type: Spontaneous
  Country: US (occurrence: US)
  Receive Date: 20130705
  Receipt Date: 20130805
  Transmission Date: 20140515
  Serious: No
  Sender: FDA-Public Use
  Company Number: US-B.I. PHARMACEUTICALS,INC./RIDGEFIELD-2013-BI-19051BP

PATIENT
  Sex: Female

DRUGS (2)
  1. ATROVENT [Suspect]
     Indication: ASTHMA
     Dosage: 85 MCG
     Route: 055
     Dates: start: 2004
  2. ATROVENT [Suspect]
     Indication: CHRONIC OBSTRUCTIVE PULMONARY DISEASE

REACTIONS (2)
  - Off label use [Not Recovered/Not Resolved]
  - Incorrect drug administration duration [Not Recovered/Not Resolved]
